FAERS Safety Report 15326014 (Version 1)
Quarter: 2018Q3

REPORT INFORMATION
  Report Type: Spontaneous
  Country: US (occurrence: US)
  Receive Date: 20180822
  Receipt Date: 20180822
  Transmission Date: 20181010
  Serious: No
  Sender: FDA-Public Use
  Company Number: None

PATIENT
  Age: 68 Year
  Sex: Male
  Weight: 67.13 kg

DRUGS (11)
  1. FISH OIL [Concomitant]
     Active Substance: FISH OIL
  2. CALCIUM [Concomitant]
     Active Substance: CALCIUM
  3. VITAMIN D [Concomitant]
     Active Substance: CHOLECALCIFEROL
  4. VITAMIN E [Concomitant]
     Active Substance: .ALPHA.-TOCOPHEROL
  5. IRON [Concomitant]
     Active Substance: IRON
  6. VITAMIN B COMPLEX [Concomitant]
     Active Substance: CYANOCOBALAMIN\DEXPANTHENOL\NIACINAMIDE\PYRIDOXINE HYDROCHLORIDE\RIBOFLAVIN 5^-PHOSPHATE SODIUM\THIAMINE HYDROCHLORIDE\VITAMIN B COMPLEX
  7. TRIPLE MAGNESIUM [Concomitant]
  8. NAPROXEN 500MG CAPLETS [Suspect]
     Active Substance: NAPROXEN
     Indication: MUSCULOSKELETAL PAIN
     Dosage: ?          QUANTITY:60;?
     Route: 048
     Dates: start: 201805, end: 20180908
  9. NAPROXEN 500MG CAPLETS [Suspect]
     Active Substance: NAPROXEN
     Indication: ARTHRALGIA
     Dosage: ?          QUANTITY:60;?
     Route: 048
     Dates: start: 201805, end: 20180908
  10. ESTER C [Concomitant]
  11. SELENIUM [Concomitant]
     Active Substance: SELENIUM

REACTIONS (4)
  - Duodenitis [None]
  - Anaemia [None]
  - Ulcer [None]
  - Gastritis [None]

NARRATIVE: CASE EVENT DATE: 201805
